FAERS Safety Report 8394615-6 (Version None)
Quarter: 2012Q2

REPORT INFORMATION
  Report Type: 
  Country: None (occurrence: None)
  Receive Date: 20120525
  Receipt Date: 20120525
  Transmission Date: 20120825
  Serious: Yes (Other)
  Sender: FDA-Public Use
  Company Number: None

PATIENT
  Age: 59 Year
  Sex: Female
  Weight: 97.977 kg

DRUGS (2)
  1. PEGASYS/RIBAVIRIN 180 MICROGRAMS/200XX MG [Suspect]
     Dosage: 180 MICROGRAM/1200MG SQ WEEKLY/PO DAILY
     Route: 048
     Dates: start: 20111109, end: 20111130
  2. TELAPREVIR 375 MG TABLETS VERTEX [Suspect]
     Indication: HEPATITIS C
     Dosage: 2 TAB TID PO
     Route: 048
     Dates: start: 20111109, end: 20111130

REACTIONS (8)
  - OCULAR ICTERUS [None]
  - WEIGHT INCREASED [None]
  - OEDEMA PERIPHERAL [None]
  - ASCITES [None]
  - JOINT SWELLING [None]
  - SWELLING FACE [None]
  - DYSPNOEA EXERTIONAL [None]
  - FATIGUE [None]
